FAERS Safety Report 5723446-8 (Version None)
Quarter: 2008Q2

REPORT INFORMATION
  Report Type: 
  Country: None (occurrence: None)
  Receive Date: 20080425
  Receipt Date: 20080214
  Transmission Date: 20081010
  Serious: Yes (Other)
  Sender: FDA-Public Use
  Company Number: PHEH2008US02118

PATIENT

DRUGS (2)
  1. MYFORTIC [Suspect]
     Dosage: 720  MG, BID, ORAL
     Route: 048
  2. VALCYTE (VALGANCICILOVIR HYDROCHLORIDE) [Concomitant]

REACTIONS (2)
  - LEUKOPENIA [None]
  - WHITE BLOOD CELL COUNT DECREASED [None]
